FAERS Safety Report 6106206-8 (Version None)
Quarter: 2009Q1

REPORT INFORMATION
  Report Type: 
  Country: None (occurrence: None)
  Receive Date: 20090306
  Receipt Date: 20090302
  Transmission Date: 20090719
  Serious: Yes (Hospitalization)
  Sender: FDA-Public Use
  Company Number: US-ELI_LILLY_AND_COMPANY-US200808004685

PATIENT
  Sex: Male

DRUGS (23)
  1. BYETTA [Suspect]
     Dosage: 10 UG, 2/D
     Route: 058
     Dates: start: 20070409, end: 20071204
  2. BYETTA [Suspect]
     Dosage: 5 UG, 2/D
     Route: 058
     Dates: start: 20070301, end: 20070408
  3. GLIMEPIRIDE [Concomitant]
     Dosage: 4 MG, DAILY (1/D)
     Route: 048
  4. LIPITOR [Concomitant]
     Dosage: 20 MG, DAILY (1/D)
     Route: 048
  5. REQUIP [Concomitant]
     Dosage: 2 MG, DAILY (1/D)
     Route: 048
  6. AVAPRO [Concomitant]
     Dosage: 150 MG, DAILY (1/D)
     Route: 048
  7. ASPIRIN                                 /SCH/ [Concomitant]
     Dosage: 81 MG, DAILY (1/D)
     Route: 048
  8. PROTONIX [Concomitant]
     Dosage: 40 MG, DAILY (1/D)
     Route: 048
  9. METFORMIN [Concomitant]
     Dosage: 500 MG, 2/D
     Route: 048
  10. ADVIL LIQUI-GELS [Concomitant]
     Dosage: UNK, AS NEEDED
  11. HYDROCODONE W/PARACETAMOL [Concomitant]
  12. SKELAXIN [Concomitant]
  13. DURADRIN [Concomitant]
  14. GABAPENTIN [Concomitant]
  15. NORTRIPTYLINE HCL [Concomitant]
  16. EFFEXOR [Concomitant]
  17. CELEBREX [Concomitant]
  18. PROPOXYPHENE HYDROCHLORIDE W/PARACETAMOL [Concomitant]
  19. AMOXICILLIN COMP [Concomitant]
  20. RELPAX [Concomitant]
  21. DESONIDE [Concomitant]
  22. PROTOPIC [Concomitant]
  23. LEVITRA [Concomitant]

REACTIONS (3)
  - ABDOMINAL PAIN [None]
  - DIARRHOEA [None]
  - PANCREATITIS [None]
